FAERS Safety Report 9546882 (Version 1)
Quarter: 2013Q2

REPORT INFORMATION
  Report Type: Spontaneous
  Country: US (occurrence: None)
  Receive Date: 20130606
  Receipt Date: 20130606
  Transmission Date: 20140414
  Serious: No
  Sender: FDA-Public Use
  Company Number: 163-POMAL-13041314

PATIENT
  Age: 56 Year
  Sex: Male

DRUGS (9)
  1. POMALYST [Suspect]
     Indication: PLASMA CELL MYELOMA
     Dosage: 4 MG, 21 IN 21 D PO
     Route: 048
     Dates: start: 20130320
  2. ADVIL [Concomitant]
  3. AMBIEN [Concomitant]
  4. AREDIA [Concomitant]
  5. DEXAMETHASONE [Concomitant]
  6. FENTANYL [Concomitant]
  7. GABAPENTIN [Concomitant]
  8. HYDROMORPHONE HCL [Concomitant]
  9. MECLIZINE HCL [Concomitant]

REACTIONS (3)
  - Glossodynia [None]
  - Parosmia [None]
  - Platelet count decreased [None]
